FAERS Safety Report 7487292-X (Version None)
Quarter: 2011Q2

REPORT INFORMATION
  Report Type: 
  Country: None (occurrence: None)
  Receive Date: 20110518
  Receipt Date: 20101223
  Transmission Date: 20111010
  Serious: Yes (Hospitalization, Other)
  Sender: FDA-Public Use
  Company Number: US-BAYER-201022913NA

PATIENT
  Age: 32 Year
  Sex: Female
  Weight: 68 kg

DRUGS (3)
  1. ALEVE [Concomitant]
     Dosage: UNK UNK, PRN
  2. OMEPRAZOLE [Concomitant]
  3. YAZ [Suspect]
     Indication: CONTRACEPTION
     Dosage: UNK UNK, UNK
     Route: 048
     Dates: start: 20080619, end: 20090701

REACTIONS (6)
  - CHOLELITHIASIS [None]
  - ABDOMINAL PAIN UPPER [None]
  - DIARRHOEA [None]
  - CHOLECYSTITIS CHRONIC [None]
  - NAUSEA [None]
  - PROCEDURAL PAIN [None]
